FAERS Safety Report 6980988-5 (Version None)
Quarter: 2010Q3

REPORT INFORMATION
  Report Type: 
  Country: None (occurrence: None)
  Receive Date: 20100914
  Receipt Date: 20100903
  Transmission Date: 20110219
  Serious: Yes (Hospitalization)
  Sender: FDA-Public Use
  Company Number: B0672918A

PATIENT
  Sex: Female

DRUGS (14)
  1. ARIXTRA [Suspect]
     Indication: ERYSIPELAS
     Dosage: 7.5MG PER DAY
     Route: 058
     Dates: start: 20100803, end: 20100813
  2. LOVENOX [Suspect]
     Indication: ERYSIPELAS
     Dosage: .4ML PER DAY
     Route: 058
     Dates: start: 20100813, end: 20100816
  3. PLAVIX [Concomitant]
     Indication: CEREBROVASCULAR ACCIDENT PROPHYLAXIS
     Dosage: 75MG PER DAY
     Route: 048
     Dates: end: 20100816
  4. FUCIDINE CAP [Concomitant]
     Indication: ERYSIPELAS
     Route: 065
     Dates: start: 20100813
  5. PRETERAX [Concomitant]
     Route: 065
  6. ATHYMIL [Concomitant]
     Route: 065
  7. NOOTROPYL [Concomitant]
     Route: 065
  8. OXYCODONE HCL [Concomitant]
     Route: 065
  9. SEROPLEX [Concomitant]
     Route: 065
  10. FORLAX [Concomitant]
     Route: 065
  11. AERIUS [Concomitant]
     Route: 065
  12. SPECIAFOLDINE [Concomitant]
     Route: 065
  13. TARDYFERON [Concomitant]
     Route: 065
  14. EFFERALGAN CODEINE [Concomitant]
     Route: 065

REACTIONS (7)
  - ANAEMIA [None]
  - ASTHENIA [None]
  - MUSCLE HAEMORRHAGE [None]
  - OVERDOSE [None]
  - PAIN [None]
  - PALLOR [None]
  - RETROPERITONEAL HAEMATOMA [None]
